FAERS Safety Report 15674843 (Version 1)
Quarter: 2018Q4

REPORT INFORMATION
  Report Type: Spontaneous
  Country: US (occurrence: US)
  Receive Date: 20181119
  Receipt Date: 20181119
  Transmission Date: 20190205
  Serious: No
  Sender: FDA-Public Use
  Company Number: None

PATIENT
  Age: 56 Year
  Sex: Female

DRUGS (1)
  1. COPAXONE [Suspect]
     Active Substance: GLATIRAMER ACETATE
     Indication: MULTIPLE SCLEROSIS
     Route: 058
     Dates: start: 20151101

REACTIONS (6)
  - Chest discomfort [None]
  - Dizziness [None]
  - Throat tightness [None]
  - Flushing [None]
  - Pain in extremity [None]
  - Spinal pain [None]

NARRATIVE: CASE EVENT DATE: 20181116
